FAERS Safety Report 25178627 (Version 2)
Quarter: 2025Q2

REPORT INFORMATION
  Report Type: Spontaneous
  Country: CN (occurrence: CN)
  Receive Date: 20250409
  Receipt Date: 20250411
  Transmission Date: 20250716
  Serious: Yes (Other)
  Sender: BRACCO
  Company Number: CN-BRACCO-2025CN02045

PATIENT
  Age: 70 Year
  Sex: Female

DRUGS (1)
  1. GADOBENATE DIMEGLUMINE [Suspect]
     Active Substance: GADOBENATE DIMEGLUMINE
     Indication: Magnetic resonance imaging
     Route: 042
     Dates: start: 20250320, end: 20250320

REACTIONS (1)
  - Altered state of consciousness [Recovering/Resolving]

NARRATIVE: CASE EVENT DATE: 20250320
